FAERS Safety Report 8579070-5 (Version None)
Quarter: 2012Q3

REPORT INFORMATION
  Report Type: 
  Country: None (occurrence: None)
  Receive Date: 20120808
  Receipt Date: 20120803
  Transmission Date: 20120928
  Serious: Yes (Death, Hospitalization, Other)
  Sender: FDA-Public Use
  Company Number: US-AMGEN-USASP2012048766

PATIENT
  Age: 72 Year
  Sex: Male

DRUGS (2)
  1. ENBREL [Suspect]
     Indication: RHEUMATOID ARTHRITIS
     Dosage: UNK
     Dates: start: 20040116, end: 20090101
  2. PROCRIT [Suspect]
     Dosage: UNK

REACTIONS (3)
  - DEATH [None]
  - HEART RATE INCREASED [None]
  - LUNG NEOPLASM MALIGNANT [None]
